FAERS Safety Report 16206507 (Version 1)
Quarter: 2019Q2

REPORT INFORMATION
  Report Type: Spontaneous
  Country: US (occurrence: US)
  Receive Date: 20190416
  Receipt Date: 20190416
  Transmission Date: 20190711
  Serious: Yes (Other)
  Sender: FDA-Public Use
  Company Number: None

PATIENT
  Age: 43 Year
  Sex: Female
  Weight: 69.3 kg

DRUGS (1)
  1. TUBERCULIN SKIN TEST [Suspect]
     Active Substance: TUBERCULIN, TINE TEST
     Indication: TUBERCULIN TEST
     Dates: start: 20190405, end: 20190416

REACTIONS (7)
  - Pruritus [None]
  - Urticaria [None]
  - Pyrexia [None]
  - Chest pain [None]
  - Dyspnoea [None]
  - Dysphagia [None]
  - Wheezing [None]

NARRATIVE: CASE EVENT DATE: 20190406
